FAERS Safety Report 26000000 (Version 1)
Quarter: 2025Q4

REPORT INFORMATION
  Report Type: Spontaneous
  Country: AU (occurrence: AU)
  Receive Date: 20251105
  Receipt Date: 20251105
  Transmission Date: 20260117
  Serious: Yes (Hospitalization, Other)
  Sender: RANBAXY
  Company Number: AU-SUN PHARMACEUTICAL INDUSTRIES LTD-2025R1-534608

PATIENT
  Age: 74 Year
  Sex: Female

DRUGS (3)
  1. PERINDOPRIL [Suspect]
     Active Substance: PERINDOPRIL
     Indication: Product used for unknown indication
     Dosage: 4 MILLIGRAM
     Route: 048
     Dates: start: 202412
  2. IBUPROFEN [Suspect]
     Active Substance: IBUPROFEN
     Indication: Back pain
     Dosage: 200 MILLIGRAM
     Route: 048
     Dates: start: 20250416
  3. MENTHOL\METHYL SALICYLATE [Suspect]
     Active Substance: MENTHOL\METHYL SALICYLATE
     Indication: Back pain
     Dosage: UNK
     Route: 062
     Dates: start: 20250411

REACTIONS (2)
  - Angioedema [Unknown]
  - Urticaria [Recovered/Resolved]

NARRATIVE: CASE EVENT DATE: 20250417
